FAERS Safety Report 5304569-4 (Version None)
Quarter: 2007Q2

REPORT INFORMATION
  Report Type: 
  Country: None (occurrence: None)
  Receive Date: 20070423
  Receipt Date: 20070418
  Transmission Date: 20071010
  Serious: Yes (Other)
  Sender: FDA-Public Use
  Company Number: US-GLAXOSMITHKLINE-A0636140A

PATIENT
  Age: 73 Year
  Sex: Female

DRUGS (7)
  1. COREG [Suspect]
     Route: 048
  2. COREG [Suspect]
     Indication: HYPERTENSION
     Dosage: 3.125MG PER DAY
     Route: 048
     Dates: start: 20020101
  3. LISINOPRIL [Suspect]
     Indication: HYPERTENSION
     Dosage: 5MG UNKNOWN
     Route: 065
     Dates: start: 20050801
  4. ZYRTEC [Concomitant]
  5. FLOVENT [Concomitant]
  6. NASONEX [Concomitant]
  7. NORVASC [Concomitant]

REACTIONS (19)
  - ASTHENIA [None]
  - ASTHMA [None]
  - ATRIAL FIBRILLATION [None]
  - BLOOD PRESSURE DECREASED [None]
  - BLOOD PRESSURE IMMEASURABLE [None]
  - BLOOD PRESSURE INADEQUATELY CONTROLLED [None]
  - BLUNTED AFFECT [None]
  - CIRCULATORY COLLAPSE [None]
  - COORDINATION ABNORMAL [None]
  - DIZZINESS [None]
  - ELECTROCARDIOGRAM CHANGE [None]
  - HEART RATE DECREASED [None]
  - HEART RATE INCREASED [None]
  - HYPERSENSITIVITY [None]
  - HYPERTENSION [None]
  - OEDEMA PERIPHERAL [None]
  - PAIN IN EXTREMITY [None]
  - PAINFUL RESPIRATION [None]
  - WEIGHT INCREASED [None]
